FAERS Safety Report 7971702-5 (Version None)
Quarter: 2011Q4

REPORT INFORMATION
  Report Type: 
  Country: None (occurrence: None)
  Receive Date: 20111212
  Receipt Date: 20111129
  Transmission Date: 20120403
  Serious: Yes (Hospitalization)
  Sender: FDA-Public Use
  Company Number: US-ELI_LILLY_AND_COMPANY-US201107006205

PATIENT
  Sex: Female

DRUGS (9)
  1. FORTEO [Suspect]
     Indication: OSTEOPOROSIS
     Dosage: 20 UG, QD
     Dates: start: 20110701
  2. SULFAMETHOXAZOLE AND TRIMETHOPRIM [Concomitant]
  3. FORTEO [Suspect]
     Dosage: 20 UG, QD
  4. RIFAMPIN [Concomitant]
  5. REQUIP [Concomitant]
  6. CODEINE SULFATE [Concomitant]
  7. ANESTHETICS [Concomitant]
  8. LYRICA [Concomitant]
  9. DIVALPROEX SODIUM [Concomitant]

REACTIONS (8)
  - JOINT SWELLING [None]
  - BLOOD PRESSURE DECREASED [None]
  - OEDEMA PERIPHERAL [None]
  - INJECTION SITE HAEMATOMA [None]
  - PRURITUS [None]
  - SURGERY [None]
  - ALOPECIA [None]
  - BURNING SENSATION [None]
